FAERS Safety Report 11007884 (Version 1)
Quarter: 2015Q2

REPORT INFORMATION
  Report Type: Spontaneous
  Country: US (occurrence: US)
  Receive Date: 20150409
  Receipt Date: 20150409
  Transmission Date: 20150821
  Serious: No
  Sender: FDA-Public Use
  Company Number: US-LUNDBECK-DKLU1109912

PATIENT
  Age: 45 Year
  Sex: Female

DRUGS (7)
  1. ONFI [Suspect]
     Active Substance: CLOBAZAM
     Indication: EPILEPSY
     Route: 048
     Dates: start: 201205
  2. ONFI [Suspect]
     Active Substance: CLOBAZAM
     Route: 048
     Dates: start: 20150302
  3. ONFI [Suspect]
     Active Substance: CLOBAZAM
     Route: 048
     Dates: start: 201503
  4. ONFI [Suspect]
     Active Substance: CLOBAZAM
     Route: 048
     Dates: start: 201503
  5. ONFI [Suspect]
     Active Substance: CLOBAZAM
     Route: 048
     Dates: start: 20150302
  6. ONFI [Suspect]
     Active Substance: CLOBAZAM
     Route: 048
     Dates: start: 201503
  7. ONFI [Suspect]
     Active Substance: CLOBAZAM
     Route: 048
     Dates: start: 201205

REACTIONS (1)
  - Somnolence [Recovered/Resolved]

NARRATIVE: CASE EVENT DATE: 20150302
